FAERS Safety Report 4944039-6 (Version None)
Quarter: 2006Q1

REPORT INFORMATION
  Report Type: 
  Country: None (occurrence: None)
  Receive Date: 20060315
  Receipt Date: 20050902
  Transmission Date: 20060701
  Serious: Yes (Other)
  Sender: FDA-Public Use
  Company Number: PHEH2005US09871

PATIENT
  Age: 54 Year
  Sex: Female

DRUGS (11)
  1. STEROIDS NOS [Concomitant]
     Dosage: INTERMITTANT
  2. TAXOTERE [Concomitant]
  3. CHEMOTHERAPEUTICS,OTHER [Concomitant]
  4. ZOLEDRONATE [Suspect]
     Indication: METASTASES TO BONE
     Dosage: 3-4MG Q4WK
     Route: 042
     Dates: start: 20040113, end: 20050727
  5. CORTICOSTEROID NOS [Concomitant]
  6. TAXOL [Concomitant]
  7. DOXIL [Concomitant]
  8. VINORELBINE TARTRATE [Concomitant]
  9. CYTOXAN [Concomitant]
  10. GEMZAR [Concomitant]
  11. AREDIA [Concomitant]

REACTIONS (8)
  - GINGIVAL PAIN [None]
  - GINGIVAL SWELLING [None]
  - GINGIVITIS [None]
  - ORAL PAIN [None]
  - OSTEONECROSIS [None]
  - PAIN IN JAW [None]
  - SOFT TISSUE INFECTION [None]
  - TOOTHACHE [None]
